FAERS Safety Report 23226335 (Version 1)
Quarter: 2023Q4

REPORT INFORMATION
  Report Type: Spontaneous
  Country: CA (occurrence: CA)
  Receive Date: 20231124
  Receipt Date: 20231124
  Transmission Date: 20240109
  Serious: Yes (Death)
  Sender: FDA-Public Use
  Company Number: CA-BIOVITRUM-2023-CA-018938

PATIENT
  Age: 17 Year
  Sex: Male

DRUGS (2)
  1. EMAPALUMAB [Suspect]
     Active Substance: EMAPALUMAB
     Indication: Epstein-Barr virus infection
  2. EMAPALUMAB [Suspect]
     Active Substance: EMAPALUMAB
     Indication: Haemophagocytic lymphohistiocytosis

REACTIONS (2)
  - Disease progression [Fatal]
  - Off label use [Unknown]
